FAERS Safety Report 8272602-6 (Version None)
Quarter: 2012Q2

REPORT INFORMATION
  Report Type: 
  Country: None (occurrence: None)
  Receive Date: 20120410
  Receipt Date: 20120329
  Transmission Date: 20120825
  Serious: Yes (Hospitalization)
  Sender: FDA-Public Use
  Company Number: JP-ELI_LILLY_AND_COMPANY-JP201106005282

PATIENT
  Age: 83 Year
  Sex: Female

DRUGS (2)
  1. FORTEO [Suspect]
     Dosage: UNK
     Route: 058
     Dates: start: 20110628
  2. FORTEO [Suspect]
     Dosage: UNK
     Route: 058
     Dates: start: 20110603, end: 20110625

REACTIONS (6)
  - ASTHENIA [None]
  - CHEST PAIN [None]
  - CHEST DISCOMFORT [None]
  - PRURITUS [None]
  - HOSPITALISATION [None]
  - ABDOMINAL DISTENSION [None]
